FAERS Safety Report 20002768 (Version 1)
Quarter: 2021Q4

REPORT INFORMATION
  Report Type: Spontaneous
  Country: US (occurrence: US)
  Receive Date: 20211028
  Receipt Date: 20211028
  Transmission Date: 20220303
  Serious: No
  Sender: FDA-Public Use
  Company Number: US-BIOVITRUM-2021US9499

PATIENT
  Sex: Female

DRUGS (4)
  1. SYNAGIS [Suspect]
     Active Substance: PALIVIZUMAB
     Indication: Antiviral prophylaxis
     Route: 030
     Dates: start: 20210909
  2. TYLENOL [Concomitant]
     Active Substance: ACETAMINOPHEN
  3. IBUPROFEN [Concomitant]
     Active Substance: IBUPROFEN
  4. FLECAINIDE [Concomitant]
     Active Substance: FLECAINIDE

REACTIONS (6)
  - Respiratory syncytial virus infection [Unknown]
  - Nasal congestion [Unknown]
  - Decreased appetite [Unknown]
  - Cough [Unknown]
  - Illness [Unknown]
  - Pyrexia [Unknown]
